FAERS Safety Report 12075144 (Version 1)
Quarter: 2016Q1

REPORT INFORMATION
  Report Type: Spontaneous
  Country: TW (occurrence: TW)
  Receive Date: 20160212
  Receipt Date: 20160212
  Transmission Date: 20160526
  Serious: Yes (Other)
  Sender: FDA-Public Use
  Company Number: TW-BAXTER-2016BAX003807

PATIENT
  Age: 3 Year
  Sex: Male
  Weight: 15 kg

DRUGS (6)
  1. CISPLATIN. [Suspect]
     Active Substance: CISPLATIN
     Dosage: LAST CYCLE
     Route: 065
     Dates: start: 20031028, end: 20031031
  2. ENDOXAN INJECTION [Suspect]
     Active Substance: CYCLOPHOSPHAMIDE
     Indication: NEUROBLASTOMA
     Route: 065
  3. ENDOXAN INJECTION [Suspect]
     Active Substance: CYCLOPHOSPHAMIDE
     Dosage: LAST CYCLE
     Route: 065
     Dates: start: 20031028, end: 20031031
  4. EPIRUBICIN [Suspect]
     Active Substance: EPIRUBICIN
     Dosage: LAST CYCLE
     Route: 065
     Dates: start: 20031028, end: 20031031
  5. EPIRUBICIN [Suspect]
     Active Substance: EPIRUBICIN
     Indication: NEUROBLASTOMA
     Route: 065
  6. CISPLATIN. [Suspect]
     Active Substance: CISPLATIN
     Indication: NEUROBLASTOMA
     Route: 065

REACTIONS (4)
  - Mouth ulceration [Recovered/Resolved]
  - Tongue ulceration [Recovered/Resolved]
  - Fatigue [Unknown]
  - Hyperthermia [Recovered/Resolved]

NARRATIVE: CASE EVENT DATE: 200311
